FAERS Safety Report 4541170-4 (Version None)
Quarter: 2004Q4

REPORT INFORMATION
  Report Type: 
  Country: None (occurrence: None)
  Receive Date: 20041227
  Receipt Date: 20041213
  Transmission Date: 20050328
  Serious: Yes (Hospitalization)
  Sender: FDA-Public Use
  Company Number: HQWYE136728MAY04

PATIENT
  Age: 43 Year
  Sex: Male

DRUGS (5)
  1. INIPOMP (PANTOPRAZOLE, TABLET, DELAYED RELEASE) [Suspect]
     Indication: PROPHYLAXIS AGAINST GASTROINTESTINAL ULCER
     Dosage: 20 MG 1X PER 1 DAY
     Route: 048
     Dates: start: 20040412, end: 20040414
  2. ADVIL [Suspect]
     Indication: ALLERGIC SINUSITIS
     Dosage: 400 MG 1X PER 1 DAY
     Route: 048
     Dates: start: 20040412, end: 20040412
  3. ADVIL [Suspect]
     Indication: HEADACHE
     Dosage: 400 MG 1X PER 1 DAY
     Route: 048
     Dates: start: 20040412, end: 20040412
  4. ACETAMINOPHEN [Suspect]
     Indication: CHRONIC SINUSITIS
  5. ACETAMINOPHEN [Suspect]
     Indication: HEADACHE

REACTIONS (9)
  - ASTHENIA [None]
  - BILIARY CYST [None]
  - DIVERTICULUM [None]
  - DUODENITIS [None]
  - GASTRIC ULCER [None]
  - GASTRITIS [None]
  - HEPATIC STEATOSIS [None]
  - HEPATOCELLULAR DAMAGE [None]
  - PRURITUS [None]
